FAERS Safety Report 7876046-8 (Version None)
Quarter: 2011Q4

REPORT INFORMATION
  Report Type: 
  Country: None (occurrence: None)
  Receive Date: 20111031
  Receipt Date: 20101018
  Transmission Date: 20120403
  Serious: No
  Sender: FDA-Public Use
  Company Number: US-BAYER-201037448NA

PATIENT
  Age: 74 Year
  Sex: Female

DRUGS (7)
  1. AVELOX [Suspect]
     Indication: DYSURIA
     Dosage: 400 MG, QD
     Route: 048
     Dates: start: 20101017
  2. OMEPRAZOLE [Concomitant]
  3. ALKA SELTZER [Concomitant]
  4. TRAZODONE HYDROCHLORIDE [Concomitant]
  5. LEVOTHYROXINE SODIUM [Concomitant]
  6. GABAPENTIN [Concomitant]
  7. ZOLPIDEM [Concomitant]

REACTIONS (1)
  - NO ADVERSE EVENT [None]
